FAERS Safety Report 5636040-4 (Version None)
Quarter: 2008Q1

REPORT INFORMATION
  Report Type: 
  Country: None (occurrence: None)
  Receive Date: 20080220
  Receipt Date: 20080220
  Transmission Date: 20080703
  Serious: No
  Sender: FDA-Public Use
  Company Number: None

PATIENT
  Age: 53 Year
  Sex: Female
  Weight: 89.8122 kg

DRUGS (4)
  1. AMITRIPTYLINE HCL [Suspect]
     Indication: ANXIETY
     Dosage: 10 MG 1 TO 2 X PER DAY PO
     Route: 048
  2. AMITRIPTYLINE HCL [Suspect]
     Indication: DEPRESSION
     Dosage: 10 MG 1 TO 2 X PER DAY PO
     Route: 048
  3. TRAMADOL HCL [Suspect]
     Indication: BACK PAIN
     Dosage: 50 MG PO
     Route: 048
  4. TRAMADOL HCL [Suspect]
     Indication: FIBROMYALGIA
     Dosage: 50 MG PO
     Route: 048

REACTIONS (15)
  - ALOPECIA [None]
  - ANXIETY [None]
  - BRUXISM [None]
  - DEPRESSION [None]
  - DEREALISATION [None]
  - FATIGUE [None]
  - FEELING ABNORMAL [None]
  - HALLUCINATION [None]
  - INSOMNIA [None]
  - PALPITATIONS [None]
  - PARANOIA [None]
  - SEROTONIN SYNDROME [None]
  - SUICIDAL IDEATION [None]
  - TINNITUS [None]
  - WEIGHT INCREASED [None]
